FAERS Safety Report 12997535 (Version 1)
Quarter: 2016Q4

REPORT INFORMATION
  Report Type: Report from Study
  Country: BR (occurrence: BR)
  Receive Date: 20161205
  Receipt Date: 20161205
  Transmission Date: 20170207
  Serious: Yes (Hospitalization, Other)
  Sender: FDA-Public Use
  Company Number: PHHY2016BR165302

PATIENT
  Age: 78 Year
  Sex: Female
  Weight: 62 kg

DRUGS (2)
  1. DIOVAN AMLO FIX [Suspect]
     Active Substance: AMLODIPINE\VALSARTAN
     Dosage: 1 DF (80 MG), QD (IN THE MORNING)
     Route: 048
  2. DIOVAN AMLO FIX [Suspect]
     Active Substance: AMLODIPINE\VALSARTAN
     Indication: HYPERTENSION
     Dosage: 1 DF (AMLODIPINE 10 MG AND VALSARTAN 320 MG), QD (AFTER BREAKFAST)
     Route: 048

REACTIONS (9)
  - Dyspnoea [Not Recovered/Not Resolved]
  - Blood glucose increased [Recovering/Resolving]
  - Spinal disorder [Unknown]
  - Hypersensitivity [Unknown]
  - Generalised erythema [Unknown]
  - Malaise [Unknown]
  - Viral infection [Unknown]
  - Pruritus [Not Recovered/Not Resolved]
  - Poisoning [Unknown]

NARRATIVE: CASE EVENT DATE: 20161030
